FAERS Safety Report 6186859-9 (Version None)
Quarter: 2009Q2

REPORT INFORMATION
  Report Type: 
  Country: None (occurrence: None)
  Receive Date: 20090508
  Receipt Date: 20090508
  Transmission Date: 20091009
  Serious: Yes (Other)
  Sender: FDA-Public Use
  Company Number: None

PATIENT
  Sex: Male

DRUGS (5)
  1. REVLIMID [Suspect]
     Indication: MULTIPLE MYELOMA
     Dosage: 25 MG DAILY X 19D ORAL
     Route: 048
     Dates: start: 20090316, end: 20090507
  2. DEXAMETHASONE 4MG TAB [Concomitant]
  3. LOVASTATIN [Concomitant]
  4. ASPIRIN [Concomitant]
  5. VICODIN [Concomitant]

REACTIONS (7)
  - AGEUSIA [None]
  - ASTHENIA [None]
  - DYSGEUSIA [None]
  - HYPOAESTHESIA [None]
  - PARAESTHESIA [None]
  - SPINAL CORD COMPRESSION [None]
  - TONGUE COATED [None]
